FAERS Safety Report 20370937 (Version 4)
Quarter: 2022Q2

REPORT INFORMATION
  Report Type: Spontaneous
  Country: DE (occurrence: DE)
  Receive Date: 20220124
  Receipt Date: 20220607
  Transmission Date: 20220720
  Serious: Yes (Other)
  Sender: FDA-Public Use
  Company Number: DE-NOVARTISPH-NVSC2019DE030605

PATIENT
  Sex: Male

DRUGS (14)
  1. VALSARTAN [Suspect]
     Active Substance: VALSARTAN
     Indication: Hypertension
     Dosage: 80 MG, QD
     Route: 065
     Dates: start: 2010, end: 2019
  2. VALSARTAN [Suspect]
     Active Substance: VALSARTAN
     Dosage: 80 MG, QD
     Route: 065
     Dates: start: 2012, end: 2018
  3. VALSARTAN [Suspect]
     Active Substance: VALSARTAN
     Dosage: 80 MG, QD
     Route: 065
     Dates: start: 201401, end: 201806
  4. VALSARTAN [Suspect]
     Active Substance: VALSARTAN
     Dosage: 40 MG
     Route: 065
  5. VALSARTAN [Suspect]
     Active Substance: VALSARTAN
     Dosage: 80 MG
     Route: 065
     Dates: start: 20130325
  6. VALSARTAN [Suspect]
     Active Substance: VALSARTAN
     Dosage: 80 MG, QD,IN THE MORNING (1-0-0)
     Route: 065
     Dates: start: 202202
  7. ESOMEPRAZOLE [Concomitant]
     Active Substance: ESOMEPRAZOLE
     Indication: Product used for unknown indication
     Dosage: UNK
     Route: 065
     Dates: start: 2018
  8. ESOMEPRAZOLE [Concomitant]
     Active Substance: ESOMEPRAZOLE
     Dosage: 20 MG, QD, IN THE MORNING
     Route: 065
  9. MIRTAZAPINE [Concomitant]
     Active Substance: MIRTAZAPINE
     Indication: Product used for unknown indication
     Dosage: 30 MG, QD, IN THE MORING
     Route: 065
  10. MESALAMINE [Concomitant]
     Active Substance: MESALAMINE
     Indication: Product used for unknown indication
     Dosage: UNK
     Route: 065
  11. VALSARTAN [Concomitant]
     Active Substance: VALSARTAN
     Indication: Product used for unknown indication
     Dosage: 1.5 UNK, INTHE MORNING
     Route: 065
     Dates: start: 202010
  12. VALSARTAN [Concomitant]
     Active Substance: VALSARTAN
     Dosage: UNK
     Route: 065
     Dates: end: 202010
  13. VALSARTAN [Concomitant]
     Active Substance: VALSARTAN
     Indication: Product used for unknown indication
     Dosage: 40 MG, QD, IN THE MORNING
     Route: 065
  14. VALSARTAN [Concomitant]
     Active Substance: VALSARTAN
     Dosage: 80 MG, QD, IN THE MORNING
     Route: 065

REACTIONS (22)
  - Inflammatory bowel disease [Not Recovered/Not Resolved]
  - Shock symptom [Unknown]
  - Hypertensive crisis [Unknown]
  - Blood pressure diastolic increased [Unknown]
  - Reflux gastritis [Unknown]
  - Dry mouth [Unknown]
  - Emotional distress [Unknown]
  - Quality of life decreased [Unknown]
  - Fear of disease [Unknown]
  - Restlessness [Unknown]
  - Anger [Unknown]
  - Somatic symptom disorder [Not Recovered/Not Resolved]
  - Tension [Unknown]
  - Nasopharyngitis [Unknown]
  - Rhinorrhoea [Unknown]
  - Cough [Unknown]
  - Oropharyngeal pain [Unknown]
  - Body temperature abnormal [Unknown]
  - Pharyngeal erythema [Unknown]
  - Nasal congestion [Unknown]
  - Pain in extremity [Unknown]
  - Coronavirus infection [Unknown]

NARRATIVE: CASE EVENT DATE: 20100101
